FAERS Safety Report 13889519 (Version 3)
Quarter: 2018Q1

REPORT INFORMATION
  Report Type: Spontaneous
  Country: US (occurrence: US)
  Receive Date: 20170822
  Receipt Date: 20180317
  Transmission Date: 20180508
  Serious: Yes (Hospitalization, Disabling, Other)
  Sender: FDA-Public Use
  Company Number: US-ENDO PHARMACEUTICALS INC-2016-004587

PATIENT
  Age: 66 Year
  Sex: Male
  Weight: 107.94 kg

DRUGS (8)
  1. TESTOPEL [Suspect]
     Active Substance: TESTOSTERONE
     Route: 058
     Dates: start: 2015
  2. MYRBETRIQ [Concomitant]
     Active Substance: MIRABEGRON
     Indication: BENIGN PROSTATIC HYPERPLASIA
     Dosage: UNK UNKNOWN, UNKNOWN
     Route: 065
     Dates: start: 2011
  3. TESTOPEL [Suspect]
     Active Substance: TESTOSTERONE
     Indication: ANDROGEN REPLACEMENT THERAPY
     Dosage: UNK UNKNOWN, UNKNOWN (ONCE)
     Route: 058
     Dates: start: 2013, end: 2015
  4. LIPITOR [Concomitant]
     Active Substance: ATORVASTATIN CALCIUM
     Indication: BLOOD CHOLESTEROL
     Dosage: UNK UNKNOWN, UNKNOWN
     Route: 065
     Dates: start: 2011
  5. ANDROGEL [Suspect]
     Active Substance: TESTOSTERONE
     Indication: ANDROGEN REPLACEMENT THERAPY
     Dosage: UNK UNKNOWN, DAILY
     Route: 065
     Dates: start: 201011, end: 201102
  6. LISINOPRIL TABLETS [Concomitant]
     Active Substance: LISINOPRIL
     Indication: HYPERTENSION
     Dosage: UNK UNKNOWN, UNKNOWN
     Route: 065
     Dates: start: 2011
  7. POTASSIUM [Concomitant]
     Active Substance: POTASSIUM
     Indication: VITAMIN K DEFICIENCY
     Dosage: UNK UNKNOWN, UNKNOWN
     Route: 065
     Dates: start: 2011
  8. ZYRTEK [Concomitant]
     Active Substance: CETIRIZINE HYDROCHLORIDE
     Indication: SEASONAL ALLERGY
     Dosage: UNK UNKNOWN, UNKNOWN
     Route: 065
     Dates: start: 2005

REACTIONS (5)
  - Dizziness [Unknown]
  - Cerebrovascular accident [Not Recovered/Not Resolved]
  - Thrombosis [Unknown]
  - Anxiety [Unknown]
  - Stress [Unknown]

NARRATIVE: CASE EVENT DATE: 201307
